FAERS Safety Report 9591723 (Version 2)
Quarter: 2013Q4

REPORT INFORMATION
  Report Type: Spontaneous
  Country: US (occurrence: US)
  Receive Date: 20131004
  Receipt Date: 20131004
  Transmission Date: 20140711
  Serious: No
  Sender: FDA-Public Use
  Company Number: US-AMGEN-USASP2012079854

PATIENT
  Age: 62 Year
  Sex: Female

DRUGS (1)
  1. ENBREL [Suspect]
     Indication: RHEUMATOID ARTHRITIS
     Dosage: 50 MG, QWK
     Dates: start: 20121112, end: 20121126

REACTIONS (10)
  - Oropharyngeal pain [Not Recovered/Not Resolved]
  - White blood cell count decreased [Not Recovered/Not Resolved]
  - Sinus congestion [Not Recovered/Not Resolved]
  - Blood pressure increased [Recovered/Resolved]
  - Hand deformity [Not Recovered/Not Resolved]
  - Tooth infection [Not Recovered/Not Resolved]
  - Arthralgia [Not Recovered/Not Resolved]
  - Pain in extremity [Not Recovered/Not Resolved]
  - Local swelling [Recovered/Resolved]
  - Foot deformity [Not Recovered/Not Resolved]
